FAERS Safety Report 4940926-3 (Version None)
Quarter: 2006Q1

REPORT INFORMATION
  Report Type: 
  Country: None (occurrence: None)
  Receive Date: 20060313
  Receipt Date: 20060302
  Transmission Date: 20060701
  Serious: Yes (Hospitalization)
  Sender: FDA-Public Use
  Company Number: JP-JNJFOC-20060301927

PATIENT
  Sex: Female
  Weight: 30 kg

DRUGS (14)
  1. RISPERDAL [Suspect]
     Route: 048
  2. RISPERDAL [Suspect]
     Route: 048
  3. RISPERDAL [Suspect]
     Route: 048
  4. RISPERDAL [Suspect]
     Route: 048
  5. RISPERDAL [Suspect]
     Route: 048
  6. RISPERDAL [Suspect]
     Route: 048
  7. RISPERDAL [Suspect]
     Route: 048
  8. RISPERDAL [Suspect]
     Route: 048
  9. RISPERDAL [Suspect]
     Indication: DRUG USE FOR UNKNOWN INDICATION
     Route: 048
  10. VALPROATE SODIUM [Suspect]
     Route: 065
  11. VALPROATE SODIUM [Suspect]
     Route: 065
  12. VALPROATE SODIUM [Suspect]
     Route: 065
  13. VALPROATE SODIUM [Suspect]
     Route: 065
  14. BIPERIDEN AND PREPARATIONS [Concomitant]
     Dates: start: 20050314, end: 20050406

REACTIONS (25)
  - ALANINE AMINOTRANSFERASE INCREASED [None]
  - ANOREXIA [None]
  - ASPARTATE AMINOTRANSFERASE INCREASED [None]
  - ATROPHY [None]
  - BLOOD GLUCOSE INCREASED [None]
  - BODY TEMPERATURE DECREASED [None]
  - BOWEL SOUNDS ABNORMAL [None]
  - CONDITION AGGRAVATED [None]
  - CORNEAL DISORDER [None]
  - CORNEAL OPACITY [None]
  - DEHYDRATION [None]
  - ELECTROENCEPHALOGRAM ABNORMAL [None]
  - EXTRAPYRAMIDAL DISORDER [None]
  - FALL [None]
  - GASTROENTERITIS [None]
  - HYPOAESTHESIA [None]
  - PALLOR [None]
  - PORIOMANIA [None]
  - PSYCHOMOTOR HYPERACTIVITY [None]
  - RED BLOOD CELL COUNT DECREASED [None]
  - SEROTONIN SYNDROME [None]
  - SLEEP DISORDER [None]
  - SOMNOLENCE [None]
  - VOMITING [None]
  - WHITE BLOOD CELL COUNT DECREASED [None]
